FAERS Safety Report 24302732 (Version 1)
Quarter: 2024Q3

REPORT INFORMATION
  Report Type: Spontaneous
  Country: US (occurrence: None)
  Receive Date: 20240908
  Receipt Date: 20240908
  Transmission Date: 20241016
  Serious: No
  Sender: Public
  Company Number: None

PATIENT
  Age: 77 Year
  Sex: Male
  Weight: 66 kg

DRUGS (2)
  1. EYLEA [Suspect]
     Active Substance: AFLIBERCEPT
     Indication: Macular degeneration
     Dates: start: 20231121
  2. VABYSMO [Suspect]
     Active Substance: FARICIMAB\FARICIMAB-SVOA

REACTIONS (3)
  - Blindness unilateral [None]
  - Chromatopsia [None]
  - Blindness transient [None]

NARRATIVE: CASE EVENT DATE: 20240318
